FAERS Safety Report 5105381-1 (Version None)
Quarter: 2006Q3

REPORT INFORMATION
  Report Type: 
  Country: None (occurrence: None)
  Receive Date: 20060731
  Receipt Date: 20060109
  Transmission Date: 20061208
  Serious: Yes (Death)
  Sender: FDA-Public Use
  Company Number: US-JNJFOC-20060102022

PATIENT
  Age: 80 Year
  Sex: Female

DRUGS (9)
  1. RISPERDAL [Suspect]
     Indication: ANXIETY
     Dosage: 1.5 MG, IN 1 DAY
     Dates: start: 20031001, end: 20051226
  2. PRINZIDE [Concomitant]
  3. IMIPRAMIDE (IMIPRAMINE) [Concomitant]
  4. CITALOPRAM HYDROBROMIDE [Concomitant]
  5. ARICEPT [Concomitant]
  6. DILTIA (ALL OTHER THERAPEUTIC PRODUCTS) [Concomitant]
  7. LOVASTATIN [Concomitant]
  8. FOSAMAX [Concomitant]
  9. GLYBURIDE [Concomitant]

REACTIONS (1)
  - PNEUMONIA ASPIRATION [None]
